FAERS Safety Report 7846389-2 (Version None)
Quarter: 2011Q4

REPORT INFORMATION
  Report Type: 
  Country: None (occurrence: None)
  Receive Date: 20111025
  Receipt Date: 20111025
  Transmission Date: 20120403
  Serious: No
  Sender: FDA-Public Use
  Company Number: None

PATIENT
  Age: 54 Year
  Sex: Female
  Weight: 63.502 kg

DRUGS (1)
  1. CIPROFLOXACIN [Suspect]

REACTIONS (13)
  - RASH [None]
  - PRURITUS [None]
  - OROPHARYNGEAL PAIN [None]
  - DIZZINESS [None]
  - ARTHROPOD BITE [None]
  - ACTIVITIES OF DAILY LIVING IMPAIRED [None]
  - ASTHENIA [None]
  - PAIN IN EXTREMITY [None]
  - SKIN MASS [None]
  - FATIGUE [None]
  - LIP SWELLING [None]
  - SYNCOPE [None]
  - FEELING ABNORMAL [None]
